FAERS Safety Report 5726918-5 (Version None)
Quarter: 2008Q2

REPORT INFORMATION
  Report Type: 
  Country: None (occurrence: None)
  Receive Date: 20080502
  Receipt Date: 20080424
  Transmission Date: 20081010
  Serious: Yes (Other)
  Sender: FDA-Public Use
  Company Number: US-PFIZER INC-2008037183

PATIENT
  Sex: Female

DRUGS (1)
  1. CHANTIX [Suspect]

REACTIONS (9)
  - COGNITIVE DISORDER [None]
  - DISTURBANCE IN SOCIAL BEHAVIOUR [None]
  - HALLUCINATION [None]
  - MARITAL PROBLEM [None]
  - MEMORY IMPAIRMENT [None]
  - NIGHTMARE [None]
  - STRESS [None]
  - SUICIDAL IDEATION [None]
  - THINKING ABNORMAL [None]
